FAERS Safety Report 7786833-2 (Version None)
Quarter: 2011Q3

REPORT INFORMATION
  Report Type: 
  Country: None (occurrence: None)
  Receive Date: 20110929
  Receipt Date: 20110927
  Transmission Date: 20111222
  Serious: Yes (Congenital Anomaly, Other)
  Sender: FDA-Public Use
  Company Number: US-PFIZER INC-2011158406

PATIENT
  Sex: Female
  Weight: 2.75 kg

DRUGS (13)
  1. CLONAZEPAM [Concomitant]
     Dosage: 1 MG, UNK
     Dates: start: 20101119
  2. FERROUS SULFATE TAB [Concomitant]
     Dosage: 325 MG, UNK
     Route: 064
     Dates: start: 20101119
  3. SEROQUEL [Concomitant]
     Indication: BIPOLAR DISORDER
     Dosage: 25 MG, 1X/DAY, EVERY BEDTIME
     Route: 064
     Dates: start: 20100101
  4. NICOTINE [Concomitant]
     Dosage: 14 MG, UNK
     Route: 064
     Dates: start: 20101102
  5. FOLIC ACID [Concomitant]
     Dosage: UNK
     Route: 064
  6. ONDANSETRON [Concomitant]
     Indication: VOMITING
  7. KLONOPIN [Concomitant]
     Indication: BIPOLAR DISORDER
     Dosage: 0.25 MG, 1X/DAY, EVERY BEDTIME
     Route: 064
  8. CLONAZEPAM [Concomitant]
     Dosage: 0.5 MG, UNK
     Route: 064
     Dates: start: 20100101
  9. NICOTINE [Concomitant]
     Dosage: 7 MG, UNK
     Route: 064
     Dates: start: 20101119
  10. ONDANSETRON [Concomitant]
     Indication: NAUSEA
     Dosage: 4 MG, 3X/DAY, AS NEEDED
     Route: 064
  11. EFFEXOR [Suspect]
     Indication: BIPOLAR DISORDER
     Dosage: 25 MG, 1X/DAY
     Route: 064
  12. PRENATAL VITAMINS [Concomitant]
     Dosage: UNK
     Route: 064
  13. EFFEXOR XR [Suspect]
     Indication: BIPOLAR DISORDER
     Dosage: 150 MG, 1X/DAY
     Route: 064
     Dates: start: 20100101

REACTIONS (7)
  - CARDIAC MURMUR [None]
  - MATERNAL EXPOSURE DURING PREGNANCY [None]
  - TRICUSPID VALVE INCOMPETENCE [None]
  - CARDIOMEGALY [None]
  - PATENT DUCTUS ARTERIOSUS [None]
  - ATRIAL SEPTAL DEFECT [None]
  - PULMONARY VALVE INCOMPETENCE [None]
